FAERS Safety Report 4666065-7 (Version None)
Quarter: 2005Q2

REPORT INFORMATION
  Report Type: 
  Country: None (occurrence: None)
  Receive Date: 20050519
  Receipt Date: 20050413
  Transmission Date: 20051028
  Serious: Yes (Other)
  Sender: FDA-Public Use
  Company Number: PHEH2005US04277

PATIENT
  Age: 42 Year
  Sex: Male

DRUGS (5)
  1. MARIJUANA [Suspect]
  2. CELEXA [Concomitant]
     Dosage: 30 MG, QD
     Route: 048
  3. NEURONTIN [Concomitant]
     Route: 048
  4. LAMISIL [Suspect]
     Indication: NAIL TINEA
     Dosage: 250 MG, QD
     Route: 048
     Dates: start: 20040902
  5. LAMISIL [Suspect]
     Dosage: 250 MG, QD
     Route: 048
     Dates: start: 20050329

REACTIONS (3)
  - BLOOD CANNABINOIDS INCREASED [None]
  - BLOOD CREATININE INCREASED [None]
  - LABORATORY TEST ABNORMAL [None]
